FAERS Safety Report 8896178 (Version 1)
Quarter: 2012Q4

REPORT INFORMATION
  Report Type: 
  Country: SE (occurrence: SE)
  Receive Date: 20121108
  Receipt Date: 20121108
  Transmission Date: 20130627
  Serious: Yes (Hospitalization)
  Sender: FDA-Public Use
  Company Number: SE-PFIZER INC-2012275019

PATIENT
  Age: 64 Year
  Sex: Male
  Weight: 72 kg

DRUGS (8)
  1. GENOTROPIN [Suspect]
     Indication: GROWTH HORMONE DEFICIENCY
     Dosage: 0.27 mg, 1x/day, 7 injections/week
     Route: 058
     Dates: start: 20000701
  2. LEVOTHYROXINE [Concomitant]
     Indication: TSH DECREASED
     Dosage: UNK
     Dates: start: 19720101
  3. LEVOTHYROXINE [Concomitant]
     Indication: PRIMARY HYPOTHYROIDISM
  4. CORTISONE ACETATE [Concomitant]
     Indication: ACTH DECREASED
     Dosage: UNK
     Dates: start: 19720101
  5. TESTOSTERONE [Concomitant]
     Indication: LUTEINIZING HORMONE DEFICIENCY
     Dosage: UNK
     Dates: start: 19740101
  6. TESTOSTERONE [Concomitant]
     Indication: FOLLICLE-STIMULATING HORMONE DEFICIENCY
  7. TESTOSTERONE [Concomitant]
     Indication: TESTICULAR HYPOGONADISM
  8. ATENOS [Concomitant]
     Indication: ACTH DECREASED
     Dosage: UNK
     Dates: start: 19970515

REACTIONS (1)
  - Joint injury [Unknown]
